FAERS Safety Report 21023013 (Version 1)
Quarter: 2022Q2

REPORT INFORMATION
  Report Type: Spontaneous
  Country: CN (occurrence: CN)
  Receive Date: 20220629
  Receipt Date: 20220629
  Transmission Date: 20220721
  Serious: Yes (Other)
  Sender: FDA-Public Use
  Company Number: None

PATIENT
  Age: 69 Year
  Sex: Female
  Weight: 59 kg

DRUGS (4)
  1. CYCLOPHOSPHAMIDE [Suspect]
     Active Substance: CYCLOPHOSPHAMIDE
     Indication: Breast cancer female
     Dosage: 0.9 G, QD, 0.9% NS(50 ML) + CYCLOPHOSPHAMIDE (0.9 G), IVGTT
     Route: 041
     Dates: start: 20220601, end: 20220601
  2. SODIUM CHLORIDE [Suspect]
     Active Substance: SODIUM CHLORIDE
     Indication: Medication dilution
     Dosage: 50 ML, QD, 0.9% NS(50 ML) + CYCLOPHOSPHAMIDE (0.9 G), IVGTT
     Route: 041
     Dates: start: 20220601, end: 20220601
  3. WATER FOR INJECTION [Suspect]
     Active Substance: WATER
     Indication: Medication dilution
     Dosage: 80 ML, QD, STERILE WATER FOR INJECTION (80 ML) + EPIRUBICIN (120 MG), IVGTT
     Route: 041
     Dates: start: 20220601, end: 20220601
  4. EPIRUBICIN HYDROCHLORIDE [Suspect]
     Active Substance: EPIRUBICIN HYDROCHLORIDE
     Indication: Breast cancer female
     Dosage: 120 MG, QD, STERILE WATER FOR INJECTION (80 ML) + EPIRUBICIN (120 MG), IVGTT
     Route: 041
     Dates: start: 20220601, end: 20220601

REACTIONS (1)
  - Myelosuppression [Recovered/Resolved]

NARRATIVE: CASE EVENT DATE: 20220606
